FAERS Safety Report 25866161 (Version 2)
Quarter: 2025Q4

REPORT INFORMATION
  Report Type: Report from Study
  Country: US (occurrence: US)
  Receive Date: 20250930
  Receipt Date: 20251013
  Transmission Date: 20260117
  Serious: Yes (Hospitalization)
  Sender: ABBVIE
  Company Number: US-ABBVIE-6481445

PATIENT
  Sex: Female

DRUGS (1)
  1. HUMIRA [Suspect]
     Active Substance: ADALIMUMAB
     Indication: Product used for unknown indication
     Route: 058
     Dates: start: 20220601, end: 202506

REACTIONS (5)
  - Gastrointestinal inflammation [Unknown]
  - Drug specific antibody present [Recovered/Resolved]
  - Therapeutic product effect decreased [Unknown]
  - Condition aggravated [Unknown]
  - Illness [Unknown]
